FAERS Safety Report 9964447 (Version 2)
Quarter: 2014Q1

REPORT INFORMATION
  Report Type: Spontaneous
  Country: LT (occurrence: LT)
  Receive Date: 20140305
  Receipt Date: 20140318
  Transmission Date: 20141002
  Serious: Yes (Other)
  Sender: FDA-Public Use
  Company Number: LT-B.I. PHARMACEUTICALS,INC./RIDGEFIELD-2014-BI-09216LT

PATIENT
  Age: 73 Year
  Sex: Female

DRUGS (3)
  1. TWYNSTA [Suspect]
     Indication: HYPERTENSION
     Dosage: DOSE PER APPLICATION: 80/5 MILLIGRAM
     Route: 048
     Dates: start: 20131201, end: 20131204
  2. ROZUVASTATINUM [Concomitant]
     Indication: BLOOD CHOLESTEROL INCREASED
     Route: 048
  3. FEROFOLGAMA [Concomitant]
     Indication: HAEMOGLOBIN DECREASED
     Route: 048

REACTIONS (5)
  - Choking sensation [Recovered/Resolved]
  - Throat irritation [Recovered/Resolved]
  - Blood pressure increased [Recovered/Resolved]
  - Flushing [Recovered/Resolved]
  - Rash [Recovered/Resolved]
